FAERS Safety Report 21229234 (Version 1)
Quarter: 2022Q3

REPORT INFORMATION
  Report Type: Report from Study
  Country: ES (occurrence: ES)
  Receive Date: 20220818
  Receipt Date: 20220818
  Transmission Date: 20221026
  Serious: Yes (Hospitalization)
  Sender: FDA-Public Use
  Company Number: None

PATIENT
  Age: 75 Year
  Sex: Male

DRUGS (1)
  1. RINVOQ [Suspect]
     Active Substance: UPADACITINIB
     Indication: Rheumatoid arthritis
     Dosage: 15 MILLIGRAM/2 DAYS?RINVOQ 15 MG PROLONGED-RELEASE TABLETS, 28 TABLETS
     Route: 048
     Dates: start: 20220221

REACTIONS (2)
  - Viral infection [Recovered/Resolved]
  - Pneumonia viral [Recovered/Resolved]

NARRATIVE: CASE EVENT DATE: 20220506
